FAERS Safety Report 13156839 (Version 1)
Quarter: 2017Q1

REPORT INFORMATION
  Report Type: Not Available
  Country: US (occurrence: US)
  Receive Date: 20170127
  Receipt Date: 20170127
  Transmission Date: 20170428
  Serious: No
  Sender: FDA-Public Use
  Company Number: US-ANIPHARMA-2016-US-001187

PATIENT
  Sex: Female

DRUGS (1)
  1. REGLAN [Suspect]
     Active Substance: METOCLOPRAMIDE HYDROCHLORIDE
     Route: 065

REACTIONS (3)
  - Tachycardia [Unknown]
  - Anxiety [Unknown]
  - Nervousness [Unknown]
